FAERS Safety Report 17909655 (Version 1)
Quarter: 2020Q2

REPORT INFORMATION
  Report Type: Spontaneous
  Country: DK (occurrence: DK)
  Receive Date: 20200617
  Receipt Date: 20200617
  Transmission Date: 20200714
  Serious: Yes (Hospitalization)
  Sender: FDA-Public Use
  Company Number: DK-PURDUE-GBR-2020-0077201

PATIENT
  Age: 77 Year
  Sex: Male

DRUGS (2)
  1. MORPHINE SULFATE. [Suspect]
     Active Substance: MORPHINE SULFATE
     Indication: PRODUCT USED FOR UNKNOWN INDICATION
     Dosage: UNK
     Route: 065
  2. PANODIL [Suspect]
     Active Substance: ACETAMINOPHEN
     Indication: PRODUCT USED FOR UNKNOWN INDICATION
     Dosage: 500 MG, UNK
     Route: 065

REACTIONS (7)
  - Product use issue [Unknown]
  - Yellow skin [Unknown]
  - Fatigue [Unknown]
  - Liver operation [Unknown]
  - Blood bilirubin increased [Unknown]
  - Hepatic function abnormal [Unknown]
  - Liver function test increased [Unknown]
